FAERS Safety Report 5209770-6 (Version None)
Quarter: 2006Q4

REPORT INFORMATION
  Report Type: 
  Country: None (occurrence: None)
  Receive Date: 20061129
  Receipt Date: 20040610
  Transmission Date: 20070319
  Serious: No
  Sender: FDA-Public Use
  Company Number: 2004UW12071

PATIENT
  Age: 83 Year
  Sex: Male
  Weight: 98.4306 kg

DRUGS (2)
  1. ZESTRIL [Suspect]
     Indication: HYPERTENSION
     Dosage: 5 MG QD PO
     Route: 048
     Dates: start: 19971215
  2. PRINIVIL [Suspect]

REACTIONS (3)
  - PRURITUS [None]
  - REACTION TO DRUG EXCIPIENTS [None]
  - URTICARIA [None]
